FAERS Safety Report 21917672 (Version 2)
Quarter: 2023Q1

REPORT INFORMATION
  Report Type: Report from Study
  Country: US (occurrence: US)
  Receive Date: 20230127
  Receipt Date: 20230301
  Transmission Date: 20230417
  Serious: No
  Sender: FDA-Public Use
  Company Number: US-002147023-NVSC2023US014046

PATIENT
  Age: 21 Year
  Sex: Female

DRUGS (1)
  1. COSENTYX [Suspect]
     Active Substance: SECUKINUMAB
     Indication: Axial spondyloarthritis
     Dosage: 150 MG
     Route: 065
     Dates: start: 20230102

REACTIONS (4)
  - Injection site pain [Unknown]
  - Fatigue [Unknown]
  - Condition aggravated [Unknown]
  - Axial spondyloarthritis [Unknown]

NARRATIVE: CASE EVENT DATE: 20230102
